FAERS Safety Report 6453173-3 (Version None)
Quarter: 2009Q4

REPORT INFORMATION
  Report Type: 
  Country: None (occurrence: None)
  Receive Date: 20091124
  Receipt Date: 20091118
  Transmission Date: 20100525
  Serious: Yes (Hospitalization)
  Sender: FDA-Public Use
  Company Number: US-BRISTOL-MYERS SQUIBB COMPANY-14861991

PATIENT
  Age: 61 Year
  Sex: Male

DRUGS (4)
  1. ONGLYZA [Suspect]
     Indication: DIABETES MELLITUS INADEQUATE CONTROL
     Dates: start: 20091117
  2. LANTUS [Concomitant]
  3. METFORMIN HCL [Concomitant]
  4. LISINOPRIL [Concomitant]

REACTIONS (2)
  - CARDIAC ENZYMES INCREASED [None]
  - NAUSEA [None]
